FAERS Safety Report 13325575 (Version 3)
Quarter: 2017Q2

REPORT INFORMATION
  Report Type: Spontaneous
  Country: US (occurrence: BM)
  Receive Date: 20170310
  Receipt Date: 20170410
  Transmission Date: 20170830
  Serious: Yes (Other)
  Sender: FDA-Public Use
  Company Number: US-JNJFOC-20170302963

PATIENT
  Sex: Female

DRUGS (6)
  1. XARELTO [Suspect]
     Active Substance: RIVAROXABAN
     Indication: ATRIAL FIBRILLATION
     Dosage: 10 MG IN THE MORNING AND 20 MG AT NIGHT
     Route: 048
     Dates: start: 201701, end: 201702
  2. THIAZIDE [Concomitant]
     Active Substance: UNSPECIFIED INGREDIENT
     Route: 065
  3. XARELTO [Suspect]
     Active Substance: RIVAROXABAN
     Indication: ATRIAL FIBRILLATION
     Dosage: IN MORNING
     Route: 048
     Dates: start: 201702
  4. XARELTO [Suspect]
     Active Substance: RIVAROXABAN
     Indication: CEREBROVASCULAR ACCIDENT PROPHYLAXIS
     Dosage: 10 MG IN THE MORNING AND 20 MG AT NIGHT
     Route: 048
     Dates: start: 201701, end: 201702
  5. IRON [Concomitant]
     Active Substance: IRON
     Indication: BLOOD DISORDER
     Route: 065
  6. XARELTO [Suspect]
     Active Substance: RIVAROXABAN
     Indication: CEREBROVASCULAR ACCIDENT PROPHYLAXIS
     Dosage: IN MORNING
     Route: 048
     Dates: start: 201702

REACTIONS (6)
  - Incorrect dose administered [Unknown]
  - Off label use [Unknown]
  - Epistaxis [Not Recovered/Not Resolved]
  - Haemoptysis [Unknown]
  - Nephrolithiasis [Unknown]
  - Nasal dryness [Not Recovered/Not Resolved]

NARRATIVE: CASE EVENT DATE: 2017
